FAERS Safety Report 26113893 (Version 1)
Quarter: 2025Q4

REPORT INFORMATION
  Report Type: Spontaneous
  Country: US (occurrence: US)
  Receive Date: 20251202
  Receipt Date: 20251202
  Transmission Date: 20260119
  Serious: Yes (Other)
  Sender: BIOMARIN
  Company Number: US-SA-2025SA350337

PATIENT
  Sex: Male

DRUGS (1)
  1. LARONIDASE [Suspect]
     Active Substance: LARONIDASE
     Indication: Mucopolysaccharidosis I
     Dosage: 5.8 (UNITS UNSPECIFIED), QW
     Dates: start: 202506

REACTIONS (3)
  - Biliary obstruction [Unknown]
  - Feeding intolerance [Unknown]
  - Pain [Unknown]

NARRATIVE: CASE EVENT DATE: 20250101
